FAERS Safety Report 5730953-0 (Version None)
Quarter: 2008Q2

REPORT INFORMATION
  Report Type: 
  Country: None (occurrence: None)
  Receive Date: 20080430
  Receipt Date: 20071214
  Transmission Date: 20081010
  Serious: No
  Sender: FDA-Public Use
  Company Number: 2007PV033847

PATIENT
  Age: 43 Year
  Sex: Female

DRUGS (1)
  1. SYMLIN [Suspect]
     Indication: DRUG USE FOR UNKNOWN INDICATION
     Dosage: 120 MCG;TID;SC
     Route: 058
     Dates: start: 20050101

REACTIONS (6)
  - AURICULAR SWELLING [None]
  - EYE SWELLING [None]
  - PHARYNGEAL OEDEMA [None]
  - SWELLING FACE [None]
  - SWOLLEN TONGUE [None]
  - URTICARIA [None]
